FAERS Safety Report 10268477 (Version 1)
Quarter: 2014Q2

REPORT INFORMATION
  Report Type: Report from Study
  Country: CA (occurrence: CA)
  Receive Date: 20140630
  Receipt Date: 20140630
  Transmission Date: 20141212
  Serious: Yes (Other)
  Sender: FDA-Public Use
  Company Number: CA-BAYER-2014-093330

PATIENT
  Age: 69 Year
  Sex: Female

DRUGS (7)
  1. ADEMPAS [Suspect]
     Indication: PULMONARY HYPERTENSION
     Dosage: 2.5 MG, TID
     Route: 048
     Dates: start: 20131114
  2. WARFARIN [Concomitant]
  3. REVATIO [Concomitant]
  4. TECTA [Concomitant]
  5. RENEDIL [Concomitant]
  6. METOPROLOL [Concomitant]
  7. TRACLEER [Concomitant]

REACTIONS (4)
  - Urticaria [None]
  - Hiatus hernia [None]
  - Oesophageal ulcer [None]
  - Gastrooesophageal reflux disease [None]
